FAERS Safety Report 19259028 (Version 1)
Quarter: 2021Q2

REPORT INFORMATION
  Report Type: Spontaneous
  Country: US (occurrence: US)
  Receive Date: 20210514
  Receipt Date: 20210514
  Transmission Date: 20210717
  Serious: No
  Sender: FDA-Public Use
  Company Number: US-SA-2021SA157094

PATIENT
  Age: 55 Year
  Sex: Female

DRUGS (2)
  1. RAYOS [Concomitant]
     Active Substance: PREDNISONE
  2. KEVZARA [Suspect]
     Active Substance: SARILUMAB
     Indication: RHEUMATOID ARTHRITIS
     Dosage: 200 MG, QOW
     Route: 058
     Dates: start: 202102

REACTIONS (5)
  - Pain [Recovering/Resolving]
  - Swelling [Not Recovered/Not Resolved]
  - Therapeutic response decreased [Recovering/Resolving]
  - Product dose omission issue [Unknown]
  - Ill-defined disorder [Unknown]

NARRATIVE: CASE EVENT DATE: 202104
